FAERS Safety Report 20070453 (Version 1)
Quarter: 2021Q4

REPORT INFORMATION
  Report Type: Report from Study
  Country: BR (occurrence: BR)
  Receive Date: 20211115
  Receipt Date: 20211115
  Transmission Date: 20220303
  Serious: Yes (Other)
  Sender: FDA-Public Use
  Company Number: BR-NOVARTISPH-NVSC2021BR259942

PATIENT
  Age: 59 Year
  Sex: Female

DRUGS (8)
  1. TAMOXIFEN [Suspect]
     Active Substance: TAMOXIFEN
     Indication: Adjuvant therapy
     Dosage: UNK
     Route: 065
     Dates: start: 201311
  2. DOXORUBICIN [Suspect]
     Active Substance: DOXORUBICIN
     Indication: Adjuvant therapy
     Dosage: UNK
     Route: 065
     Dates: start: 20130208, end: 20130725
  3. PACLITAXEL [Suspect]
     Active Substance: PACLITAXEL
     Indication: Adjuvant therapy
     Dosage: UNK
     Route: 065
     Dates: start: 20130208, end: 20130725
  4. ANASTROZOLE [Suspect]
     Active Substance: ANASTROZOLE
     Indication: Invasive ductal breast carcinoma
     Dosage: UNK
     Route: 065
     Dates: start: 201811
  5. RIBOCICLIB [Suspect]
     Active Substance: RIBOCICLIB
     Indication: Palliative care
     Dosage: 600 MG, QD (FOR 3 CONSECUTIVE WEEKS FOLOWED BY WEEK OF REST)
     Route: 065
     Dates: start: 201908
  6. LETROZOLE [Suspect]
     Active Substance: LETROZOLE
     Indication: Invasive ductal breast carcinoma
     Dosage: 2.5 MG, QD
     Route: 065
     Dates: start: 201908
  7. CYCLOPHOSPHAMIDE [Concomitant]
     Active Substance: CYCLOPHOSPHAMIDE
     Indication: Adjuvant therapy
     Dosage: UNK
     Route: 065
     Dates: start: 20130208, end: 20130725
  8. DENOSUMAB [Concomitant]
     Active Substance: DENOSUMAB
     Indication: Product used for unknown indication
     Dosage: 120 MG EVERY 28 DAYS
     Route: 065
     Dates: start: 201908

REACTIONS (6)
  - Pulmonary embolism [Unknown]
  - Breast cancer recurrent [Unknown]
  - Metastases to lymph nodes [Unknown]
  - Metastases to bone [Unknown]
  - Metastases to lung [Unknown]
  - Drug intolerance [Unknown]

NARRATIVE: CASE EVENT DATE: 20190801
